FAERS Safety Report 8424051-5 (Version None)
Quarter: 2012Q2

REPORT INFORMATION
  Report Type: 
  Country: None (occurrence: None)
  Receive Date: 20120608
  Receipt Date: 20110323
  Transmission Date: 20120825
  Serious: No
  Sender: FDA-Public Use
  Company Number: US-ASTRAZENECA-2011SE16601

PATIENT
  Sex: Male

DRUGS (3)
  1. BLOOD PRESSURE MEDS [Concomitant]
  2. CHOLESTEROL MEDS [Concomitant]
  3. PULMICORT FLEXHALER [Suspect]
     Indication: CHRONIC OBSTRUCTIVE PULMONARY DISEASE
     Dosage: 180 MCG 2 PUFFS TWO TIMES A DAY
     Route: 055
     Dates: start: 20110101

REACTIONS (2)
  - COUGH [None]
  - INCREASED UPPER AIRWAY SECRETION [None]
